FAERS Safety Report 6270304-9 (Version None)
Quarter: 2009Q3

REPORT INFORMATION
  Report Type: 
  Country: None (occurrence: None)
  Receive Date: 20090716
  Receipt Date: 20090708
  Transmission Date: 20100115
  Serious: Yes (Other)
  Sender: FDA-Public Use
  Company Number: B0583048A

PATIENT
  Age: 55 Year
  Sex: Female

DRUGS (1)
  1. NICORETTE [Suspect]
     Indication: DRUG USE FOR UNKNOWN INDICATION
     Dosage: 15MG PER DAY
     Route: 062
     Dates: start: 20090508, end: 20090611

REACTIONS (4)
  - HYPERSENSITIVITY [None]
  - RASH [None]
  - SKIN BURNING SENSATION [None]
  - SKIN DISORDER [None]
